FAERS Safety Report 8391487-0 (Version None)
Quarter: 2012Q2

REPORT INFORMATION
  Report Type: 
  Country: None (occurrence: None)
  Receive Date: 20120515
  Receipt Date: 20120502
  Transmission Date: 20120825
  Serious: Yes (Other)
  Sender: FDA-Public Use
  Company Number: WAES 1205USA00836

PATIENT
  Age: 51 Year
  Sex: Female

DRUGS (2)
  1. FOSAMAX [Suspect]
     Indication: BREAST CANCER
     Dosage: IV
     Route: 042
  2. FOSAMAX [Suspect]
     Indication: OSTEOPOROSIS
     Dosage: IV
     Route: 042

REACTIONS (2)
  - OSTEONECROSIS OF JAW [None]
  - SINUSITIS [None]
